FAERS Safety Report 8427648-1 (Version None)
Quarter: 2012Q2

REPORT INFORMATION
  Report Type: 
  Country: None (occurrence: None)
  Receive Date: 20120611
  Receipt Date: 20120605
  Transmission Date: 20120825
  Serious: No
  Sender: FDA-Public Use
  Company Number: US-PFIZER INC-2012135942

PATIENT
  Sex: Female

DRUGS (6)
  1. TOVIAZ [Suspect]
     Indication: BLADDER DISORDER
     Dosage: 8 MG,DAILY
     Dates: start: 20120501
  2. MELOXICAM [Concomitant]
     Indication: ARTHRITIS
     Dosage: 7 MG, AS NEEDED
  3. VESICARE [Suspect]
     Indication: BLADDER DISORDER
     Dosage: 10 MG,DAILY
     Route: 048
  4. LOSARTAN [Concomitant]
     Indication: BLOOD PRESSURE ABNORMAL
     Dosage: 100 MG,DAILY
  5. LISINOPRIL [Concomitant]
     Indication: BLOOD PRESSURE MANAGEMENT
     Dosage: 40 MG,DAILY
  6. TERBINAFINE [Concomitant]
     Indication: TINEA PEDIS
     Dosage: 25 MG,DAILY

REACTIONS (2)
  - ABDOMINAL PAIN UPPER [None]
  - DRUG INEFFECTIVE [None]
